FAERS Safety Report 24882247 (Version 1)
Quarter: 2025Q1

REPORT INFORMATION
  Report Type: Report from Study
  Country: UG (occurrence: UG)
  Receive Date: 20250124
  Receipt Date: 20250124
  Transmission Date: 20250408
  Serious: Yes (Congenital Anomaly, Other)
  Sender: HETERO
  Company Number: UG-AMAROX PHARMA-HET2025UG00236

PATIENT
  Sex: Male
  Weight: 1.16 kg

DRUGS (1)
  1. EMTRICITABINE\TENOFOVIR DISOPROXIL FUMARATE [Suspect]
     Active Substance: EMTRICITABINE\TENOFOVIR DISOPROXIL FUMARATE
     Indication: Product used for unknown indication
     Route: 064
     Dates: start: 20191127

REACTIONS (2)
  - Respiratory distress [Unknown]
  - Foetal exposure during pregnancy [Unknown]
